FAERS Safety Report 4691020-0 (Version None)
Quarter: 2005Q2

REPORT INFORMATION
  Report Type: 
  Country: None (occurrence: None)
  Receive Date: 20050610
  Receipt Date: 20050602
  Transmission Date: 20051028
  Serious: Yes (Other)
  Sender: FDA-Public Use
  Company Number: 2005020606

PATIENT
  Age: 45 Year
  Sex: Female

DRUGS (10)
  1. ZYRTEC [Suspect]
     Indication: URTICARIA
     Dosage: 10 MG (10 MG, 1 IN 1 D), ORAL
     Route: 048
     Dates: start: 20041217, end: 20050118
  2. TERBINAFINE HCL [Suspect]
     Indication: TINEA BLANCA
     Dosage: 125 MG (125 MG, 1 IN 1 D), ORAL
     Route: 048
     Dates: start: 20040727, end: 20050118
  3. MEQUITAZINE (MEQUITAZINE) [Suspect]
     Indication: URTICARIA
     Dosage: 6 MG (6 MG, 1 IN 1 D), ORAL
     Route: 048
     Dates: start: 20040713, end: 20050118
  4. ANTITUSSIVES AND EXPECTORANTS, COMBINATIONS (ANTITUSSIVES AND EXPECTOR [Concomitant]
  5. POVIDONE IODINE [Concomitant]
  6. ALL OTHER THERAPEUTIC PRODUCTS (ALL OTHER THERAPEUTIC PRODUCTS) [Concomitant]
  7. DIFLUPREDNATE (DIFLUPREDNATE) [Concomitant]
  8. LORATADINE [Concomitant]
  9. NIZATIDINE [Concomitant]
  10. TERBINAFINE HCL [Concomitant]

REACTIONS (2)
  - ELECTROCARDIOGRAM QT PROLONGED [None]
  - NASOPHARYNGITIS [None]
